FAERS Safety Report 15746033 (Version 2)
Quarter: 2019Q1

REPORT INFORMATION
  Report Type: Spontaneous
  Country: BR (occurrence: BR)
  Receive Date: 20181220
  Receipt Date: 20190114
  Transmission Date: 20190417
  Serious: Yes (Death, Hospitalization)
  Sender: FDA-Public Use
  Company Number: BR-PFIZER INC-2018513667

PATIENT
  Age: 70 Year
  Sex: Male

DRUGS (2)
  1. SUTENT [Suspect]
     Active Substance: SUNITINIB MALATE
     Dosage: 50 MG, 1X/DAY
     Dates: start: 201810, end: 201810
  2. SUTENT [Suspect]
     Active Substance: SUNITINIB MALATE
     Indication: METASTASIS
     Dosage: 50 MG, 1X/DAY
     Dates: start: 201809, end: 201809

REACTIONS (6)
  - Neoplasm progression [Fatal]
  - Enteritis infectious [Recovered/Resolved]
  - Blood magnesium decreased [Recovered/Resolved]
  - Blood sodium decreased [Recovered/Resolved]
  - Blood potassium decreased [Recovered/Resolved]
  - Diarrhoea [Recovered/Resolved]

NARRATIVE: CASE EVENT DATE: 201809
